FAERS Safety Report 19076606 (Version 1)
Quarter: 2021Q1

REPORT INFORMATION
  Report Type: Spontaneous
  Country: US (occurrence: US)
  Receive Date: 20210330
  Receipt Date: 20210330
  Transmission Date: 20210420
  Serious: Yes (Hospitalization, Other)
  Sender: FDA-Public Use
  Company Number: None

PATIENT

DRUGS (3)
  1. INSULIN [Suspect]
     Active Substance: INSULIN NOS
  2. METOPROLOL. [Concomitant]
     Active Substance: METOPROLOL
  3. TAMSULOSIN [Suspect]
     Active Substance: TAMSULOSIN

REACTIONS (5)
  - Arthralgia [None]
  - Blood pressure systolic increased [None]
  - Limb injury [None]
  - Fall [None]
  - Joint injury [None]

NARRATIVE: CASE EVENT DATE: 20190620
